FAERS Safety Report 10004106 (Version 2)
Quarter: 2014Q2

REPORT INFORMATION
  Report Type: Spontaneous
  Country: US (occurrence: US)
  Receive Date: 20140312
  Receipt Date: 20140611
  Transmission Date: 20141212
  Serious: No
  Sender: FDA-Public Use
  Company Number: US-INCYTE CORPORATION-2014IN000340

PATIENT
  Age: 66 Year
  Sex: Female
  Weight: 65.76 kg

DRUGS (3)
  1. JAKAFI [Suspect]
     Indication: MYELOFIBROSIS
     Dosage: 20 MG, BID
     Route: 048
     Dates: start: 20120321, end: 20140408
  2. FISH OIL [Concomitant]
  3. BENADRYL                           /00000402/ [Concomitant]
     Indication: PRURITUS

REACTIONS (1)
  - Eye haemorrhage [Recovering/Resolving]
